FAERS Safety Report 9056503 (Version 2)
Quarter: 2013Q1

REPORT INFORMATION
  Report Type: Report from Study
  Country: MD (occurrence: MD)
  Receive Date: 20130204
  Receipt Date: 20130214
  Transmission Date: 20140127
  Serious: Yes (Death, Life-Threatening, Hospitalization)
  Sender: FDA-Public Use
  Company Number: MD-PFIZER INC-2012331216

PATIENT
  Age: 24 Year
  Sex: Female
  Weight: 53.3 kg

DRUGS (7)
  1. PF-04236921 [Suspect]
     Indication: SYSTEMIC LUPUS ERYTHEMATOSUS
     Dosage: 200 MG,EVERY EIGHT WEEKS
     Route: 058
     Dates: start: 20121002
  2. METHYLPREDNISOLONE [Suspect]
     Dosage: 8 MG/DAY
     Route: 048
     Dates: start: 2011, end: 2011
  3. METHYLPREDNISOLONE [Suspect]
     Dosage: 20 MG, UNK
     Route: 048
     Dates: start: 20120821
  4. METHYLPREDNISOLONE [Suspect]
     Dosage: 8 MG, 1X/DAY, TITRATED FROM 18DEC2012
     Route: 048
     Dates: start: 20121218, end: 20121226
  5. METHYLPREDNISOLONE SODIUM SUCCINATE [Suspect]
     Dosage: 1.5 MG/KG, 500 MG, PULSE
     Route: 042
     Dates: start: 201101, end: 201101
  6. METHYLPREDNISOLONE SODIUM SUCCINATE [Suspect]
     Dosage: 500 MG, PULSE
     Route: 042
     Dates: start: 201208, end: 201208
  7. METHYLPREDNISOLONE SODIUM SUCCINATE [Suspect]
     Dosage: 500 MG, 1X/DAY
     Route: 042
     Dates: start: 20121230, end: 20130101

REACTIONS (3)
  - Disseminated tuberculosis [Fatal]
  - Pericarditis [Fatal]
  - Pulmonary embolism [Fatal]
